FAERS Safety Report 8484871-8 (Version None)
Quarter: 2012Q3

REPORT INFORMATION
  Report Type: 
  Country: None (occurrence: None)
  Receive Date: 20120703
  Receipt Date: 20120626
  Transmission Date: 20120928
  Serious: Yes (Other)
  Sender: FDA-Public Use
  Company Number: KR-US-EMD SERONO, INC.-7142748

PATIENT
  Sex: Female

DRUGS (1)
  1. GONAL-F [Suspect]
     Indication: IN VITRO FERTILISATION
     Route: 058
     Dates: start: 20110303, end: 20110311

REACTIONS (3)
  - LIVE BIRTH [None]
  - ADVERSE EVENT [None]
  - TWIN PREGNANCY [None]
